FAERS Safety Report 18136345 (Version 1)
Quarter: 2020Q3

REPORT INFORMATION
  Report Type: Spontaneous
  Country: US (occurrence: US)
  Receive Date: 20200811
  Receipt Date: 20200811
  Transmission Date: 20201103
  Serious: No
  Sender: FDA-Public Use
  Company Number: US-PERSON AND COVEY-2088474

PATIENT
  Age: 56 Year
  Sex: Female

DRUGS (1)
  1. DRYSOL [Suspect]
     Active Substance: ALUMINUM CHLORIDE
     Indication: HYPERHIDROSIS
     Route: 003
     Dates: start: 20200709

REACTIONS (1)
  - Skin burning sensation [Unknown]

NARRATIVE: CASE EVENT DATE: 20200709
